FAERS Safety Report 6375368-X (Version None)
Quarter: 2009Q3

REPORT INFORMATION
  Report Type: 
  Country: None (occurrence: None)
  Receive Date: 20090924
  Receipt Date: 20090917
  Transmission Date: 20100115
  Serious: Yes (Life-Threatening)
  Sender: FDA-Public Use
  Company Number: JP-ABBOTT-09P-087-0597732-00

PATIENT
  Sex: Male

DRUGS (2)
  1. KLARICID DRY SYRUP [Suspect]
     Indication: RHINITIS ALLERGIC
     Route: 048
  2. UNKNOWN DRUG [Suspect]
     Indication: DRUG USE FOR UNKNOWN INDICATION
     Route: 045

REACTIONS (2)
  - MUCOCUTANEOUS RASH [None]
  - ORAL MUCOSAL ERUPTION [None]
